FAERS Safety Report 24692641 (Version 1)
Quarter: 2024Q4

REPORT INFORMATION
  Report Type: Spontaneous
  Country: US (occurrence: None)
  Receive Date: 20241203
  Receipt Date: 20241203
  Transmission Date: 20250115
  Serious: No
  Sender: Public
  Company Number: None

PATIENT
  Age: 66 Year
  Sex: Male
  Weight: 92 kg

DRUGS (2)
  1. PIRFENIDONE [Suspect]
     Active Substance: PIRFENIDONE
     Indication: Sarcoidosis
  2. METHOTREXATE SODIUM [Suspect]
     Active Substance: METHOTREXATE SODIUM

REACTIONS (6)
  - Vomiting [None]
  - Fatigue [None]
  - Decreased appetite [None]
  - Rash erythematous [None]
  - Weight decreased [None]
  - Therapy cessation [None]

NARRATIVE: CASE EVENT DATE: 20241022
